FAERS Safety Report 18457986 (Version 1)
Quarter: 2020Q4

REPORT INFORMATION
  Report Type: Spontaneous
  Country: FR (occurrence: FR)
  Receive Date: 20201103
  Receipt Date: 20201103
  Transmission Date: 20210114
  Serious: Yes (Hospitalization)
  Sender: FDA-Public Use
  Company Number: FR-MYLANLABS-2020M1091174

PATIENT
  Age: 90 Year
  Sex: Male
  Weight: 84.2 kg

DRUGS (11)
  1. VOTRIENT [Suspect]
     Active Substance: PAZOPANIB HYDROCHLORIDE
     Indication: CLEAR CELL RENAL CELL CARCINOMA
     Dosage: 5 JOURS SUR 7
     Route: 048
     Dates: start: 201808, end: 20200619
  2. BISOPROLOL                         /00802602/ [Concomitant]
     Active Substance: BISOPROLOL
     Dosage: UNK
  3. PRAVASTATIN SODIUM. [Concomitant]
     Active Substance: PRAVASTATIN SODIUM
     Dosage: UNK
  4. INLYTA [Suspect]
     Active Substance: AXITINIB
     Indication: CLEAR CELL RENAL CELL CARCINOMA
     Dosage: 10 MILLIGRAM, QD
     Route: 048
     Dates: start: 20200924, end: 20200926
  5. ESOMEPRAZOLE. [Concomitant]
     Active Substance: ESOMEPRAZOLE MAGNESIUM
     Dosage: UNK
  6. DIFFU K [Concomitant]
     Active Substance: POTASSIUM CHLORIDE
     Dosage: UNK
  7. HYDROCHLOROTHIAZIDE. [Concomitant]
     Active Substance: HYDROCHLOROTHIAZIDE
     Dosage: UNK
  8. OPDIVO [Suspect]
     Active Substance: NIVOLUMAB
     Indication: CLEAR CELL RENAL CELL CARCINOMA
     Dosage: 480 MILLIGRAM, MONTHLY
     Route: 041
     Dates: start: 20200619, end: 202009
  9. LOSARTAN POTASSSIUM [Concomitant]
     Active Substance: LOSARTAN POTASSIUM
     Dosage: UNK
  10. CLOPIDOGREL [Suspect]
     Active Substance: CLOPIDOGREL BISULFATE
     Indication: PRODUCT USED FOR UNKNOWN INDICATION
     Dosage: UNK
  11. LASILIX                            /00032601/ [Concomitant]
     Active Substance: FUROSEMIDE
     Dosage: UNK

REACTIONS (6)
  - Dyspnoea [Recovered/Resolved]
  - Acute kidney injury [Recovering/Resolving]
  - Cardiac failure [Recovered/Resolved]
  - Oedema peripheral [Recovered/Resolved]
  - Fluid retention [Recovered/Resolved]
  - Troponin increased [Recovered/Resolved]

NARRATIVE: CASE EVENT DATE: 20200926
